FAERS Safety Report 11743771 (Version 3)
Quarter: 2015Q4

REPORT INFORMATION
  Report Type: Spontaneous
  Country: DE (occurrence: DE)
  Receive Date: 20151116
  Receipt Date: 20151210
  Transmission Date: 20160304
  Serious: Yes (Other)
  Sender: FDA-Public Use
  Company Number: DE-SA-2015SA180158

PATIENT
  Sex: Male

DRUGS (2)
  1. SOLOSTAR [Concomitant]
     Active Substance: DEVICE
     Dates: start: 201511, end: 201511
  2. LANTUS SOLOSTAR [Suspect]
     Active Substance: INSULIN GLARGINE
     Indication: VICTIM OF HOMICIDE
     Route: 058
     Dates: start: 201511, end: 201511

REACTIONS (3)
  - Hypoglycaemia [Unknown]
  - Physical assault [Unknown]
  - Overdose [Unknown]

NARRATIVE: CASE EVENT DATE: 201511
